FAERS Safety Report 17625390 (Version 3)
Quarter: 2020Q3

REPORT INFORMATION
  Report Type: Spontaneous
  Country: NL (occurrence: NL)
  Receive Date: 20200403
  Receipt Date: 20200729
  Transmission Date: 20201102
  Serious: Yes (Other)
  Sender: FDA-Public Use
  Company Number: NL-AUROBINDO-AUR-APL-2020-016463

PATIENT
  Age: 68 Year
  Sex: Male
  Weight: 88.9 kg

DRUGS (17)
  1. DEXAMETHASON [Suspect]
     Active Substance: DEXAMETHASONE
     Indication: CHEMOTHERAPY
     Dosage: 10 MILLIGRAM, ONCE A DAY
     Route: 042
     Dates: start: 20200114, end: 20200117
  2. DEXAMETHASON [Suspect]
     Active Substance: DEXAMETHASONE
     Dosage: 10 MILLIGRAM, ONCE A DAY
     Route: 042
     Dates: start: 20200311
  3. OMEPRAZOLE. [Concomitant]
     Active Substance: OMEPRAZOLE
     Indication: PRODUCT USED FOR UNKNOWN INDICATION
     Dosage: 40 MILLIGRAM, ONCE A DAY
     Route: 048
     Dates: start: 20200228
  4. TOCILIZUMAB. [Suspect]
     Active Substance: TOCILIZUMAB
     Indication: CYTOKINE RELEASE SYNDROME
     Dosage: 699.2 MILLIGRAM, ONCE A DAY
     Route: 042
     Dates: start: 20200306, end: 20200308
  5. LISINOPRIL. [Concomitant]
     Active Substance: LISINOPRIL
     Indication: HYPERTENSION
     Dosage: 20 MILLIGRAM, 1 TOTAL (ONCE)
     Route: 048
     Dates: start: 20200227
  6. DEXAMETHASON [Suspect]
     Active Substance: DEXAMETHASONE
     Dosage: 10 MILLIGRAM, ONCE A DAY
     Route: 042
     Dates: start: 20200308, end: 20200308
  7. AXICABTAGENE CILOLEUCEL [Suspect]
     Active Substance: AXICABTAGENE CILOLEUCEL
     Indication: B-CELL LYMPHOMA
     Dosage: 68 MILLILITER, 1 TOTAL (ONCE)
     Route: 042
     Dates: start: 20200303, end: 20200303
  8. MESNA. [Suspect]
     Active Substance: MESNA
     Indication: PROPHYLAXIS
     Dosage: 400 MILLIGRAM, 3 TIMES A DAY (1200 MILLIGRAM, ONCE A DAY)
     Route: 042
     Dates: start: 20200227
  9. PCM [Suspect]
     Active Substance: ACETAMINOPHEN
     Dosage: UNK
     Route: 048
     Dates: start: 20200310
  10. HYDROCHLOROTHIAZIDE. [Concomitant]
     Active Substance: HYDROCHLOROTHIAZIDE
     Indication: DIURETIC THERAPY
     Dosage: 12.5 MILLIGRAM, 1 AS NECESSARY
     Route: 048
     Dates: start: 20200227
  11. DEXAMETHASON [Suspect]
     Active Substance: DEXAMETHASONE
     Dosage: 10 MILLIGRAM, ONCE A DAY
     Route: 048
     Dates: start: 20200214, end: 20200217
  12. AXICABTAGENE CILOLEUCEL [Suspect]
     Active Substance: AXICABTAGENE CILOLEUCEL
     Indication: DIFFUSE LARGE B-CELL LYMPHOMA
  13. CYCLOPHOSPHAMIDE. [Suspect]
     Active Substance: CYCLOPHOSPHAMIDE
     Indication: BONE MARROW CONDITIONING REGIMEN
     Dosage: 1060 MILLIGRAM, ONCE A DAY
     Route: 042
     Dates: start: 20200227
  14. PCM [Suspect]
     Active Substance: ACETAMINOPHEN
     Indication: PYREXIA
     Dosage: 1000 MILLIGRAM, AS NECESSARY
     Route: 048
     Dates: start: 20200303, end: 20200310
  15. POTASSIUM CHLORIDE AND SODIUM CHLORIDE [Concomitant]
     Active Substance: POTASSIUM CHLORIDE\SODIUM CHLORIDE
     Indication: PRODUCT USED FOR UNKNOWN INDICATION
     Dosage: 30 MILLIMOLE 1 (TOTAL)
     Route: 065
     Dates: start: 20200309
  16. MAGNESIUM HYDROXIDE. [Concomitant]
     Active Substance: MAGNESIUM HYDROXIDE
     Indication: ABDOMINAL PAIN UPPER
     Dosage: 724 MILLIGRAM, TWO TIMES A DAY
     Route: 048
     Dates: start: 20100510
  17. FLUDARABINE [Suspect]
     Active Substance: FLUDARABINE PHOSPHATE
     Indication: BONE MARROW CONDITIONING REGIMEN
     Dosage: 32.5 MILLIGRAM, ONCE A DAY
     Route: 042
     Dates: start: 20200227

REACTIONS (11)
  - Abdominal pain upper [Not Recovered/Not Resolved]
  - Hypertension [Recovered/Resolved]
  - Atrial fibrillation [Recovered/Resolved with Sequelae]
  - Dysgeusia [Recovered/Resolved]
  - Diarrhoea [Recovered/Resolved]
  - Hyperhidrosis [Not Recovered/Not Resolved]
  - Cytokine release syndrome [Recovered/Resolved]
  - Neurotoxicity [Recovered/Resolved]
  - Hepatic enzyme increased [Recovered/Resolved]
  - Neutrophil count decreased [Not Recovered/Not Resolved]
  - Headache [Recovered/Resolved]

NARRATIVE: CASE EVENT DATE: 20200303
